FAERS Safety Report 6522514-0 (Version None)
Quarter: 2009Q4

REPORT INFORMATION
  Report Type: 
  Country: None (occurrence: None)
  Receive Date: 20091230
  Receipt Date: 20091218
  Transmission Date: 20100525
  Serious: Yes (Disabling, Other)
  Sender: FDA-Public Use
  Company Number: CA-AMGEN-QUU381353

PATIENT
  Age: 61 Year
  Sex: Female
  Weight: 53 kg

DRUGS (12)
  1. NEUPOGEN [Suspect]
     Indication: DRUG USE FOR UNKNOWN INDICATION
     Route: 042
  2. ASAPHEN [Concomitant]
  3. DOCUSATE [Concomitant]
  4. LIPITOR [Concomitant]
  5. GLYBURIDE [Concomitant]
  6. TRIAMIZIDE [Concomitant]
  7. ATENOLOL [Concomitant]
  8. DOMPERIDONE [Concomitant]
  9. METFORMIN [Concomitant]
  10. PREMARIN [Concomitant]
  11. TEGRETOL [Concomitant]
  12. ZOFRAN [Concomitant]

REACTIONS (7)
  - BLOOD CREATININE INCREASED [None]
  - HAEMATOCRIT DECREASED [None]
  - HAEMOGLOBIN DECREASED [None]
  - NAUSEA [None]
  - NEUTROPHIL COUNT DECREASED [None]
  - VOMITING [None]
  - WEIGHT DECREASED [None]
